FAERS Safety Report 22082022 (Version 1)
Quarter: 2023Q1

REPORT INFORMATION
  Report Type: Spontaneous
  Country: US (occurrence: US)
  Receive Date: 20230310
  Receipt Date: 20230310
  Transmission Date: 20230418
  Serious: Yes (Hospitalization)
  Sender: FDA-Public Use
  Company Number: US-ORG100016242-2023000066

PATIENT
  Sex: Female

DRUGS (3)
  1. BUPIVACAINE [Suspect]
     Active Substance: BUPIVACAINE
     Indication: Caesarean section
     Dosage: INCISIONAL INJECTION INTRAOPERATIVELY, DOSE NOT PROVIDED
     Route: 050
  2. ACETAMINOPHEN [Suspect]
     Active Substance: ACETAMINOPHEN
     Indication: Preoperative care
     Dosage: DOSAGE NOT REPORTED
     Route: 065
  3. GABAPENTIN [Suspect]
     Active Substance: GABAPENTIN
     Indication: Preoperative care
     Dosage: DOSAGE NOT REPORTED
     Route: 065

REACTIONS (1)
  - Pulmonary embolism [Unknown]
